FAERS Safety Report 6076986-9 (Version None)
Quarter: 2009Q1

REPORT INFORMATION
  Report Type: 
  Country: None (occurrence: None)
  Receive Date: 20090213
  Receipt Date: 20090206
  Transmission Date: 20090719
  Serious: Yes (Other)
  Sender: FDA-Public Use
  Company Number: US-BAYER-200840526NA

PATIENT
  Age: 29 Year
  Sex: Female
  Weight: 65 kg

DRUGS (4)
  1. MIRENA [Suspect]
     Indication: CONTRACEPTION
     Route: 015
     Dates: start: 20080919, end: 20081010
  2. PROZAC [Concomitant]
  3. VICODIN [Concomitant]
  4. ASPIRIN [Concomitant]

REACTIONS (3)
  - DYSARTHRIA [None]
  - GRAND MAL CONVULSION [None]
  - LOSS OF CONSCIOUSNESS [None]
